FAERS Safety Report 9700679 (Version 1)
Quarter: 2013Q4

REPORT INFORMATION
  Report Type: Spontaneous
  Country: US (occurrence: US)
  Receive Date: 20131121
  Receipt Date: 20131121
  Transmission Date: 20140711
  Serious: Yes (Other)
  Sender: FDA-Public Use
  Company Number: PHEH2013US024231

PATIENT
  Sex: Female

DRUGS (5)
  1. DIOVAN [Suspect]
     Dosage: 80 MG, UNK
  2. SPIRONOLACTONE [Concomitant]
     Dosage: UNK UKN, UNK
  3. CARVEDILOL [Concomitant]
     Dosage: UNK UKN, UNK
  4. BABY ASPIRIN [Concomitant]
     Dosage: UNK UKN, UNK
  5. MULTIPLE VITAMINS [Concomitant]
     Dosage: UNK UKN, UNK

REACTIONS (4)
  - Fall [Recovering/Resolving]
  - Muscle injury [Unknown]
  - Abasia [Recovering/Resolving]
  - Limb discomfort [Recovering/Resolving]
